FAERS Safety Report 7400412-8 (Version None)
Quarter: 2011Q2

REPORT INFORMATION
  Report Type: 
  Country: None (occurrence: None)
  Receive Date: 20110405
  Receipt Date: 20110405
  Transmission Date: 20111010
  Serious: No
  Sender: FDA-Public Use
  Company Number: None

PATIENT

DRUGS (1)
  1. ZICAM [Suspect]
     Dates: start: 20090601, end: 20090615

REACTIONS (2)
  - AGEUSIA [None]
  - ANOSMIA [None]
